FAERS Safety Report 9528490 (Version 1)
Quarter: 2013Q1

REPORT INFORMATION
  Report Type: Spontaneous
  Country: US (occurrence: None)
  Receive Date: 20130314
  Receipt Date: 20130314
  Transmission Date: 20140127
  Serious: Yes (Other)
  Sender: FDA-Public Use
  Company Number: 1212USA009591

PATIENT
  Age: 63 Year
  Sex: Male

DRUGS (3)
  1. PEG-INTRON (PEGINTERFERON ALFA-2B) POWDER FOR INJECTION [Suspect]
     Indication: HEPATITIS C
     Dates: start: 20121105
  2. RIBAVIRIN (RIBAVIRIN) CAPSULES [Suspect]
     Indication: HEPATITIS C
  3. VICTRELIS (BOCEPREVIR) CAPSULE [Suspect]
     Indication: HEPATITIS C

REACTIONS (6)
  - Pyrexia [None]
  - Dizziness [None]
  - Pulmonary congestion [None]
  - Decreased activity [None]
  - Anaemia [None]
  - Chills [None]
